FAERS Safety Report 18248498 (Version 1)
Quarter: 2020Q3

REPORT INFORMATION
  Report Type: Spontaneous
  Country: KR (occurrence: KR)
  Receive Date: 20200909
  Receipt Date: 20200909
  Transmission Date: 20201103
  Serious: Yes (Other)
  Sender: FDA-Public Use
  Company Number: KR-ALVOGEN-2020-ALVOGEN-114218

PATIENT
  Age: 48 Year
  Sex: Female

DRUGS (1)
  1. DAPSONE. [Suspect]
     Active Substance: DAPSONE
     Indication: ACNE
     Dosage: 50?100 MG?LATENT PERIOD (DAY): 19

REACTIONS (1)
  - Drug reaction with eosinophilia and systemic symptoms [Unknown]
